FAERS Safety Report 12522120 (Version 2)
Quarter: 2016Q3

REPORT INFORMATION
  Report Type: Spontaneous
  Country: US (occurrence: US)
  Receive Date: 20160701
  Receipt Date: 20160824
  Transmission Date: 20161109
  Serious: No
  Sender: FDA-Public Use
  Company Number: US-GLAXOSMITHKLINE-US2016GSK087955

PATIENT
  Age: 53 Year
  Sex: Female

DRUGS (2)
  1. TANZEUM [Suspect]
     Active Substance: ALBIGLUTIDE
     Indication: WEIGHT DECREASED
  2. TANZEUM [Suspect]
     Active Substance: ALBIGLUTIDE
     Indication: BLOOD GLUCOSE INCREASED
     Dosage: 50 MG, WE
     Route: 042
     Dates: start: 201512

REACTIONS (6)
  - Weight decreased [Unknown]
  - Off label use [Unknown]
  - Decreased appetite [Not Recovered/Not Resolved]
  - Therapeutic response unexpected [Not Recovered/Not Resolved]
  - Drug dose omission [Unknown]
  - Device use error [Unknown]

NARRATIVE: CASE EVENT DATE: 201512
